FAERS Safety Report 7135768-7 (Version None)
Quarter: 2010Q4

REPORT INFORMATION
  Report Type: 
  Country: None (occurrence: None)
  Receive Date: 20101203
  Receipt Date: 20101129
  Transmission Date: 20110411
  Serious: Yes (Other)
  Sender: FDA-Public Use
  Company Number: US-ABBOTT-10P-163-0686346-00

PATIENT
  Age: 54 Year
  Sex: Female
  Weight: 93.07 kg

DRUGS (6)
  1. TRICOR [Suspect]
     Indication: PRODUCT USED FOR UNKNOWN INDICATION
  2. CHANTIX [Suspect]
     Indication: SMOKING CESSATION THERAPY
     Route: 048
     Dates: start: 20100927
  3. CHANTIX [Suspect]
     Route: 048
     Dates: start: 20100101
  4. METFORMIN HCL [Suspect]
     Indication: DIABETES MELLITUS
  5. LISINOPRIL [Suspect]
     Indication: PRODUCT USED FOR UNKNOWN INDICATION
  6. COGENTIN [Suspect]
     Indication: ANXIETY

REACTIONS (3)
  - BIPOLAR DISORDER [None]
  - DEPRESSION [None]
  - HALLUCINATION [None]
